FAERS Safety Report 24547100 (Version 2)
Quarter: 2024Q4

REPORT INFORMATION
  Report Type: Spontaneous
  Country: JP (occurrence: JP)
  Receive Date: 20241025
  Receipt Date: 20241120
  Transmission Date: 20250114
  Serious: Yes (Death)
  Sender: AMGEN
  Company Number: JP-Vifor (International) Inc.-VIT-2024-09596

PATIENT
  Age: 69 Year
  Sex: Male

DRUGS (1)
  1. TAVNEOS [Suspect]
     Active Substance: AVACOPAN
     Indication: Granulomatosis with polyangiitis
     Dosage: 30 MILLIGRAM, Q12H
     Route: 048

REACTIONS (1)
  - Asphyxia [Fatal]
